FAERS Safety Report 23521104 (Version 1)
Quarter: 2024Q1

REPORT INFORMATION
  Report Type: Spontaneous
  Country: US (occurrence: US)
  Receive Date: 20240214
  Receipt Date: 20240214
  Transmission Date: 20240410
  Serious: Yes (Other)
  Sender: FDA-Public Use
  Company Number: US-009507513-2402USA003482

PATIENT
  Sex: Male

DRUGS (2)
  1. KEYTRUDA [Suspect]
     Active Substance: PEMBROLIZUMAB
     Indication: Colorectal adenocarcinoma
     Dosage: UNK
     Dates: start: 20210325, end: 20220425
  2. REGORAFENIB [Suspect]
     Active Substance: REGORAFENIB
     Indication: Colorectal adenocarcinoma
     Dosage: UNK
     Dates: start: 20210325, end: 20220425

REACTIONS (1)
  - Malignant neoplasm progression [Unknown]

NARRATIVE: CASE EVENT DATE: 20220425
